FAERS Safety Report 13447799 (Version 1)
Quarter: 2017Q2

REPORT INFORMATION
  Report Type: Spontaneous
  Country: US (occurrence: US)
  Receive Date: 20170417
  Receipt Date: 20170417
  Transmission Date: 20170830
  Serious: No
  Sender: FDA-Public Use
  Company Number: US-ABBVIE-17P-163-1927354-00

PATIENT
  Age: 62 Year
  Sex: Female

DRUGS (15)
  1. CYTARABINE. [Suspect]
     Active Substance: CYTARABINE
     Indication: LEUKAEMIA
     Route: 065
     Dates: start: 20170224
  2. IMODIUM [Concomitant]
     Active Substance: LOPERAMIDE HYDROCHLORIDE
     Indication: DIARRHOEA
     Dosage: AS NEEDED, WATERY BOWEL MOVEMENTS
     Route: 048
  3. OLOPATADINE. [Concomitant]
     Active Substance: OLOPATADINE
     Indication: PRODUCT USED FOR UNKNOWN INDICATION
     Dosage: TO EACH AFFECTED EYE
  4. VENCLEXTA [Suspect]
     Active Substance: VENETOCLAX
     Indication: LEUKAEMIA
     Dosage: SWALLOW WHOLE, DO NOT CRUSH, TAKE WITH FOOD
     Route: 048
     Dates: start: 20170224
  5. AUGMENTIN [Concomitant]
     Active Substance: AMOXICILLIN\CLAVULANATE POTASSIUM
     Indication: ANTIBIOTIC PROPHYLAXIS
     Dosage: 875MG-125MG, TAKE WITH FOOD OR MILK
     Route: 048
  6. MAGNESIUM OXIDE. [Concomitant]
     Active Substance: MAGNESIUM OXIDE
     Indication: PRODUCT USED FOR UNKNOWN INDICATION
     Route: 048
  7. ZOFRAN [Concomitant]
     Active Substance: ONDANSETRON HYDROCHLORIDE
     Indication: VOMITING
  8. VFEND [Concomitant]
     Active Substance: VORICONAZOLE
     Dosage: TAKE 2, 50MG TABS + 1, 200MG TAB, 1 HOUR BEFORE OR 2 HOURS AFTER A MEAL
     Route: 048
  9. ZOVIRAX [Concomitant]
     Active Substance: ACYCLOVIR
     Indication: ANTIVIRAL PROPHYLAXIS
     Route: 048
  10. ZOFRAN [Concomitant]
     Active Substance: ONDANSETRON HYDROCHLORIDE
     Indication: NAUSEA
     Dosage: AS NEEDED
     Route: 048
  11. IVERMECTIN. [Concomitant]
     Active Substance: IVERMECTIN
     Indication: PRODUCT USED FOR UNKNOWN INDICATION
     Route: 061
  12. XALATAN [Concomitant]
     Active Substance: LATANOPROST
     Indication: GLAUCOMA
     Dosage: TO EACH AFFECTED EYE AT BEDTIME
  13. VFEND [Concomitant]
     Active Substance: VORICONAZOLE
     Indication: ANTIFUNGAL PROPHYLAXIS
     Dosage: TAKE 2, 50MG TABS + 1, 200MG TAB, 1 HOUR BEFORE OR 2 HOURS AFTER A MEAL
     Route: 048
  14. RESTASIS [Concomitant]
     Active Substance: CYCLOSPORINE
     Indication: DRY EYE
     Dosage: TO EACH AFFECTED EYE
  15. SYSTANE (HYPROMELLOSE 2910 (4000 MPA.S)) [Concomitant]
     Active Substance: HYPROMELLOSE 2910 (4000 MPA.S)
     Indication: PRODUCT USED FOR UNKNOWN INDICATION
     Dosage: TO EACH AFFECTED EYE

REACTIONS (2)
  - Peripheral swelling [Unknown]
  - Cellulitis staphylococcal [Unknown]

NARRATIVE: CASE EVENT DATE: 20170228
